FAERS Safety Report 23307392 (Version 1)
Quarter: 2023Q4

REPORT INFORMATION
  Report Type: Spontaneous
  Country: FR (occurrence: FR)
  Receive Date: 20231218
  Receipt Date: 20231218
  Transmission Date: 20240109
  Serious: Yes (Hospitalization)
  Sender: FDA-Public Use
  Company Number: None

PATIENT
  Age: 70 Year
  Sex: Female
  Weight: 58 kg

DRUGS (4)
  1. CAPECITABINE [Suspect]
     Active Substance: CAPECITABINE
     Indication: Breast cancer
     Dosage: 1500 MG 2 TIMES A DAY/1FP/D1 TO D14 THEN 7-DAY BREAK?DAILY DOSE: 3000 MILLIGRAM
     Route: 048
     Dates: start: 20230917, end: 20230929
  2. CAPECITABINE [Suspect]
     Active Substance: CAPECITABINE
     Indication: Breast cancer
     Dosage: 850MG X2/D?DAILY DOSE: 1700 MILLIGRAM
     Route: 048
  3. DEPAKOTE [Concomitant]
     Active Substance: DIVALPROEX SODIUM
     Dosage: 250 MG -0- 500 MG?DAILY DOSE: 750 MILLIGRAM
     Route: 048
  4. CLOZAPINE [Concomitant]
     Active Substance: CLOZAPINE
     Dosage: 0-0-175 MG?DAILY DOSE: 175 MILLIGRAM
     Route: 048

REACTIONS (8)
  - Neutropenia [Recovered/Resolved]
  - Diarrhoea [Not Recovered/Not Resolved]
  - Abdominal pain [Not Recovered/Not Resolved]
  - General physical health deterioration [Unknown]
  - Metabolic acidosis [Unknown]
  - Cardio-respiratory arrest [Unknown]
  - Palmar-plantar erythrodysaesthesia syndrome [Not Recovered/Not Resolved]
  - Mucosal inflammation [Not Recovered/Not Resolved]

NARRATIVE: CASE EVENT DATE: 20230928
